FAERS Safety Report 5168497-X (Version None)
Quarter: 2006Q4

REPORT INFORMATION
  Report Type: 
  Country: None (occurrence: None)
  Receive Date: 20061201
  Receipt Date: 20061121
  Transmission Date: 20070319
  Serious: Yes (Death, Hospitalization)
  Sender: FDA-Public Use
  Company Number: A-CH2006-13637

PATIENT
  Age: 64 Year
  Sex: Female

DRUGS (3)
  1. TRACLEER [Suspect]
     Indication: PULMONARY HYPERTENSION
     Dosage: 125 MG,  BID, ORAL; 62.5 ,G, BID, ORAL
     Route: 048
     Dates: start: 20060901, end: 20061009
  2. TRACLEER [Suspect]
     Indication: PULMONARY HYPERTENSION
     Dosage: 125 MG,  BID, ORAL; 62.5 ,G, BID, ORAL
     Route: 048
     Dates: start: 20061010, end: 20061119
  3. SILDENAFIL CITRATE [Concomitant]

REACTIONS (5)
  - ANURIA [None]
  - CARDIO-RESPIRATORY ARREST [None]
  - DYSPNOEA [None]
  - GENERALISED OEDEMA [None]
  - HYPOTENSION [None]
